FAERS Safety Report 10053321 (Version 3)
Quarter: 2014Q2

REPORT INFORMATION
  Report Type: Report from Study
  Country: AU (occurrence: AU)
  Receive Date: 20140402
  Receipt Date: 20140409
  Transmission Date: 20141212
  Serious: Yes (Other)
  Sender: FDA-Public Use
  Company Number: PHHY2014AU018274

PATIENT
  Age: 56 Year
  Sex: Female
  Weight: 70 kg

DRUGS (3)
  1. AFINITOR [Suspect]
     Indication: BREAST CANCER METASTATIC
     Dosage: 10 MG, QD
     Route: 048
     Dates: start: 20131020, end: 201402
  2. AFINITOR [Suspect]
     Dosage: 5 MG, UNK
     Route: 048
  3. AFINITOR [Suspect]
     Dosage: 10 MG, UNK
     Route: 048

REACTIONS (5)
  - Papule [Recovered/Resolved]
  - Blister [Recovered/Resolved]
  - Rash [Recovered/Resolved]
  - Metastasis [Unknown]
  - Skin oedema [Recovered/Resolved]
